FAERS Safety Report 9290625 (Version 1)
Quarter: 2013Q2

REPORT INFORMATION
  Report Type: Spontaneous
  Country: US (occurrence: US)
  Receive Date: 20130515
  Receipt Date: 20130515
  Transmission Date: 20140414
  Serious: Yes (Other)
  Sender: FDA-Public Use
  Company Number: 2013SP001340

PATIENT
  Age: 27 Year
  Sex: Male

DRUGS (5)
  1. LATUDA [Suspect]
     Indication: SCHIZOPHRENIA
     Route: 048
     Dates: start: 2013
  2. INSULIN [Suspect]
     Indication: TYPE 1 DIABETES MELLITUS
  3. INSULIN [Suspect]
     Indication: TYPE 1 DIABETES MELLITUS
  4. COGENTIN [Concomitant]
     Indication: PRODUCT USED FOR UNKNOWN INDICATION
  5. DEPAKOTE [Concomitant]
     Indication: PRODUCT USED FOR UNKNOWN INDICATION

REACTIONS (1)
  - Hypoglycaemia [Not Recovered/Not Resolved]
